FAERS Safety Report 8538313-4 (Version None)
Quarter: 2012Q3

REPORT INFORMATION
  Report Type: 
  Country: None (occurrence: None)
  Receive Date: 20120726
  Receipt Date: 20120718
  Transmission Date: 20120928
  Serious: No
  Sender: FDA-Public Use
  Company Number: US-BIOGENIDEC-2012BI026242

PATIENT
  Age: 45 Year
  Sex: Female

DRUGS (2)
  1. AVONEX [Suspect]
     Indication: MULTIPLE SCLEROSIS
     Route: 030
     Dates: start: 20120321
  2. AVONEX [Suspect]
     Route: 030
     Dates: start: 20120718

REACTIONS (6)
  - WEIGHT DECREASED [None]
  - VOMITING [None]
  - FATIGUE [None]
  - OEDEMA PERIPHERAL [None]
  - PYREXIA [None]
  - NAUSEA [None]
